FAERS Safety Report 14769574 (Version 1)
Quarter: 2018Q2

REPORT INFORMATION
  Report Type: Spontaneous
  Country: JP (occurrence: JP)
  Receive Date: 20180417
  Receipt Date: 20180417
  Transmission Date: 20180711
  Serious: Yes (Hospitalization)
  Sender: FDA-Public Use
  Company Number: JP-PFIZER INC-2018149316

PATIENT

DRUGS (3)
  1. CORTRIL [Suspect]
     Active Substance: HYDROCORTISONE
     Dosage: UNK
  2. ADETPHOS [Interacting]
     Active Substance: ADENOSINE TRIPHOSPHATE
     Dosage: UNK
  3. ISOBIDE [Interacting]
     Active Substance: ISOSORBIDE
     Dosage: UNK

REACTIONS (2)
  - Drug interaction [Unknown]
  - Loss of consciousness [Unknown]
